FAERS Safety Report 8182306-6 (Version None)
Quarter: 2012Q1

REPORT INFORMATION
  Report Type: 
  Country: None (occurrence: None)
  Receive Date: 20120302
  Receipt Date: 20120228
  Transmission Date: 20120608
  Serious: Yes (Death)
  Sender: FDA-Public Use
  Company Number: PHEH2012US002065

PATIENT
  Sex: Male

DRUGS (1)
  1. NEORAL [Suspect]
     Indication: RENAL TRANSPLANT
     Dosage: 100 MG, UNK
     Route: 048
     Dates: start: 20050101, end: 20110101

REACTIONS (4)
  - CARDIAC FAILURE CONGESTIVE [None]
  - RENAL DISORDER [None]
  - MENTAL RETARDATION [None]
  - RENAL FAILURE [None]
